FAERS Safety Report 8532545-7 (Version None)
Quarter: 2012Q3

REPORT INFORMATION
  Report Type: 
  Country: None (occurrence: None)
  Receive Date: 20120724
  Receipt Date: 20120718
  Transmission Date: 20120928
  Serious: No
  Sender: FDA-Public Use
  Company Number: US-PFIZER INC-2012174281

PATIENT
  Sex: Female
  Weight: 70.295 kg

DRUGS (6)
  1. CHANTIX [Suspect]
     Indication: SMOKING CESSATION THERAPY
     Dosage: 0.5 MG, 1X/DAY
     Route: 048
  2. CHANTIX [Suspect]
     Dosage: UNK
     Route: 048
  3. ASPIRIN [Concomitant]
     Dosage: UNK
  4. GILENYA [Concomitant]
     Indication: MULTIPLE SCLEROSIS
     Dosage: UNK, 1X/DAY
  5. VITAMIN D [Concomitant]
     Dosage: 5000 MG, 1X/DAY
  6. BACLOFEN [Concomitant]
     Dosage: UNK, 1X/DAY

REACTIONS (1)
  - NAUSEA [None]
